FAERS Safety Report 8261947-1 (Version None)
Quarter: 2012Q2

REPORT INFORMATION
  Report Type: 
  Country: None (occurrence: None)
  Receive Date: 20120405
  Receipt Date: 20120321
  Transmission Date: 20120825
  Serious: Yes (Death, Disabling, Congenital Anomaly, Other)
  Sender: FDA-Public Use
  Company Number: FR-AMGEN-US211553

PATIENT
  Sex: Female

DRUGS (2)
  1. ENBREL [Suspect]
     Dosage: 50 MG, QWK
     Route: 064
     Dates: start: 20060731
  2. CARTREX [Suspect]
     Dosage: UNK UNK, UNK
     Route: 064

REACTIONS (2)
  - TRISOMY 21 [None]
  - EXPOSURE VIA FATHER [None]
